FAERS Safety Report 11306402 (Version 3)
Quarter: 2015Q4

REPORT INFORMATION
  Report Type: Spontaneous
  Country: US (occurrence: US)
  Receive Date: 20150723
  Receipt Date: 20151125
  Transmission Date: 20160304
  Serious: Yes (Other)
  Sender: FDA-Public Use
  Company Number: US-BAYER-2015-380576

PATIENT
  Age: 45 Year
  Sex: Female

DRUGS (1)
  1. MIRENA [Suspect]
     Active Substance: LEVONORGESTREL
     Indication: MENORRHAGIA
     Dosage: 20 MCG/24HR, CONT
     Route: 015
     Dates: start: 20150305, end: 20150828

REACTIONS (8)
  - Weight increased [None]
  - Device dislocation [None]
  - Headache [None]
  - Drug ineffective [Recovered/Resolved]
  - Medical device pain [None]
  - Menorrhagia [None]
  - Mood altered [None]
  - Medical device discomfort [None]

NARRATIVE: CASE EVENT DATE: 2015
